FAERS Safety Report 9093520 (Version 1)
Quarter: 2013Q1

REPORT INFORMATION
  Report Type: Report from Study
  Country: PR (occurrence: PR)
  Receive Date: 20130131
  Receipt Date: 20130131
  Transmission Date: 20140127
  Serious: No
  Sender: FDA-Public Use
  Company Number: PR-ABBOTT-12P-131-0917412-00

PATIENT
  Sex: Female

DRUGS (8)
  1. HUMIRA [Suspect]
     Indication: RHEUMATOID ARTHRITIS
     Route: 058
     Dates: start: 2007, end: 201203
  2. HUMIRA [Suspect]
     Route: 058
     Dates: end: 201209
  3. HUMIRA [Suspect]
     Route: 058
     Dates: start: 20120913
  4. METHOTREXATE [Concomitant]
     Indication: RHEUMATOID ARTHRITIS
     Route: 058
  5. METHOTREXATE [Concomitant]
     Dosage: 3-5 TABLETS WEEKLY
     Route: 048
     Dates: start: 200711
  6. CELEBREX [Concomitant]
     Indication: RHEUMATOID ARTHRITIS
     Route: 048
  7. UNKNOWN PILL [Concomitant]
     Indication: DEPRESSION
     Dosage: 1 TABLET AT BEDTIME
     Route: 048
  8. UNKNOWN PILL [Concomitant]
     Indication: DEPRESSION
     Route: 048

REACTIONS (3)
  - Nasopharyngitis [Recovered/Resolved]
  - Nasopharyngitis [Recovered/Resolved]
  - Nasopharyngitis [Unknown]
